FAERS Safety Report 24658709 (Version 1)
Quarter: 2024Q4

REPORT INFORMATION
  Report Type: Spontaneous
  Country: US (occurrence: None)
  Receive Date: 20241122
  Receipt Date: 20241122
  Transmission Date: 20250115
  Serious: No
  Sender: Public
  Company Number: None

PATIENT
  Sex: Male

DRUGS (3)
  1. SIROLIMUS [Suspect]
     Active Substance: SIROLIMUS
     Indication: Bone marrow transplant
     Dosage: 0.5MG EVERY OTHER DAY BY MOUTH
     Route: 048
     Dates: start: 202408
  2. JAKAFI [Suspect]
     Active Substance: RUXOLITINIB
  3. RESTASIS [Concomitant]

REACTIONS (1)
  - Muscle spasms [None]
